FAERS Safety Report 13831367 (Version 1)
Quarter: 2017Q3

REPORT INFORMATION
  Report Type: Spontaneous
  Country: US (occurrence: US)
  Receive Date: 20170803
  Receipt Date: 20170803
  Transmission Date: 20171127
  Serious: No
  Sender: FDA-Public Use
  Company Number: GXBR2017US000672

PATIENT
  Age: 53 Year
  Sex: Female
  Weight: 102.4 kg

DRUGS (1)
  1. ALPRAZOLAM. [Suspect]
     Active Substance: ALPRAZOLAM
     Indication: ANXIETY
     Dosage: 2.5 MG, QD (PRN)
     Route: 048
     Dates: end: 20170123

REACTIONS (6)
  - Feeling abnormal [Recovered/Resolved]
  - Drug dependence [Recovered/Resolved]
  - Tremor [Recovered/Resolved]
  - Bruxism [Recovered/Resolved]
  - Anxiety [Recovered/Resolved]
  - Tension [Recovering/Resolving]

NARRATIVE: CASE EVENT DATE: 20170119
